FAERS Safety Report 4293366-7 (Version None)
Quarter: 2004Q1

REPORT INFORMATION
  Report Type: 
  Country: None (occurrence: None)
  Receive Date: 20040126
  Receipt Date: 20031103
  Transmission Date: 20041129
  Serious: No
  Sender: FDA-Public Use
  Company Number: USA031151574

PATIENT
  Age: 80 Year
  Sex: Female
  Weight: 60 kg

DRUGS (6)
  1. FORTEO [Suspect]
     Indication: OSTEOPOROSIS
     Dates: start: 20031031
  2. PREDNISONE [Concomitant]
  3. NEXIUM [Concomitant]
  4. LEVOTHROID [Concomitant]
  5. CALCIUM [Concomitant]
  6. VITAMINS NOS [Concomitant]

REACTIONS (1)
  - ABDOMINAL PAIN UPPER [None]
